FAERS Safety Report 24146950 (Version 4)
Quarter: 2025Q2

REPORT INFORMATION
  Report Type: Report from Study
  Country: JP (occurrence: JP)
  Receive Date: 20240729
  Receipt Date: 20250404
  Transmission Date: 20250716
  Serious: Yes (Other)
  Sender: RIGEL PHARMACEUTICALS
  Company Number: JP-Rigel Pharmaceuticals, Inc.-20240700101

PATIENT
  Age: 76 Year
  Sex: Male
  Weight: 62.6 kg

DRUGS (1)
  1. FOSTAMATINIB DISODIUM [Suspect]
     Active Substance: FOSTAMATINIB DISODIUM
     Indication: Immune thrombocytopenia
     Dosage: 100 MG, BID
     Route: 048
     Dates: start: 20230626, end: 20240924

REACTIONS (2)
  - Chronic myeloid leukaemia [Unknown]
  - Drug ineffective [Unknown]
